FAERS Safety Report 9531745 (Version 1)
Quarter: 2013Q3

REPORT INFORMATION
  Report Type: Spontaneous
  Country: US (occurrence: None)
  Receive Date: 20130917
  Receipt Date: 20130917
  Transmission Date: 20140515
  Serious: Yes (Hospitalization)
  Sender: FDA-Public Use
  Company Number: None

PATIENT
  Age: 82 Year
  Sex: Male
  Weight: 82 kg

DRUGS (13)
  1. DENOSUMAB [Suspect]
     Indication: PROSTATE CANCER
     Route: 058
     Dates: end: 20110419
  2. LOVASTATIN [Concomitant]
  3. VITAMIN D [Concomitant]
  4. SERTRALINE [Concomitant]
  5. MEGESTROL [Concomitant]
  6. MEMANTINE [Concomitant]
  7. GLIPIZIDE [Concomitant]
  8. CALCIUM [Concomitant]
  9. DONEPEZIL [Concomitant]
  10. DOXAZOSIN [Concomitant]
  11. NIFEDIPINE [Concomitant]
  12. ASPIRIN [Concomitant]
  13. LEUPROLIDE [Concomitant]

REACTIONS (4)
  - Dehydration [None]
  - Hypocalcaemia [None]
  - Hypomagnesaemia [None]
  - Metabolic acidosis [None]
